FAERS Safety Report 8829247 (Version 1)
Quarter: 2012Q4

REPORT INFORMATION
  Report Type: 
  Country: MX (occurrence: MX)
  Receive Date: 20121008
  Receipt Date: 20121008
  Transmission Date: 20130627
  Serious: Yes (Other)
  Sender: FDA-Public Use
  Company Number: PHHY2012MX086200

PATIENT
  Sex: Female

DRUGS (1)
  1. TEGRETOL [Suspect]
     Dosage: 400 mg, BID

REACTIONS (2)
  - Central nervous system lesion [Not Recovered/Not Resolved]
  - Convulsion [Not Recovered/Not Resolved]
